FAERS Safety Report 8717196 (Version 3)
Quarter: 2013Q1

REPORT INFORMATION
  Report Type: Spontaneous
  Country: US (occurrence: US)
  Receive Date: 20120810
  Receipt Date: 20130320
  Transmission Date: 20140127
  Serious: No
  Sender: FDA-Public Use
  Company Number: PHEH2012US015590

PATIENT
  Age: 51 Year
  Sex: Male
  Weight: 96.15 kg

DRUGS (3)
  1. TASIGNA [Suspect]
     Indication: CHRONIC MYELOID LEUKAEMIA
     Dosage: 150 MG, BID
     Route: 048
     Dates: start: 20101227
  2. TASIGNA [Suspect]
     Dosage: 300 MG, BID
     Route: 048
     Dates: start: 20110223, end: 20110629
  3. PRILOSEC [Concomitant]
     Indication: GASTROOESOPHAGEAL REFLUX DISEASE
     Dosage: 20 MG, UNK
     Dates: start: 20110511

REACTIONS (5)
  - White blood cell count abnormal [Unknown]
  - Incorrect dose administered [Unknown]
  - Leukocytosis [Unknown]
  - Rash [Recovering/Resolving]
  - Therapeutic response decreased [Unknown]
